FAERS Safety Report 5943230-X (Version None)
Quarter: 2008Q4

REPORT INFORMATION
  Report Type: 
  Country: None (occurrence: None)
  Receive Date: 20081106
  Receipt Date: 20081031
  Transmission Date: 20090506
  Serious: Yes (Other)
  Sender: FDA-Public Use
  Company Number: D0059116A

PATIENT
  Age: 24 Year
  Sex: Female
  Weight: 62 kg

DRUGS (3)
  1. ELONTRIL [Suspect]
     Indication: ATTENTION DEFICIT/HYPERACTIVITY DISORDER
     Dosage: 150MG PER DAY
     Route: 048
     Dates: start: 20080821, end: 20080827
  2. RITALIN [Concomitant]
     Dosage: 5MG TWICE PER DAY
     Route: 048
  3. REBOXETINE [Concomitant]
     Dosage: 2MG TWICE PER DAY
     Route: 048

REACTIONS (12)
  - EPILEPSY [None]
  - EPILEPTIC AURA [None]
  - HYPERVENTILATION [None]
  - MIGRAINE [None]
  - MIGRAINE WITH AURA [None]
  - NAUSEA [None]
  - PANIC REACTION [None]
  - PHOSPHENES [None]
  - RESTLESSNESS [None]
  - TEMPORAL LOBE EPILEPSY [None]
  - TREMOR [None]
  - VISUAL IMPAIRMENT [None]
